FAERS Safety Report 6726162-9 (Version None)
Quarter: 2010Q2

REPORT INFORMATION
  Report Type: 
  Country: None (occurrence: None)
  Receive Date: 20100514
  Receipt Date: 20100512
  Transmission Date: 20101027
  Serious: Yes (Life-Threatening, Other)
  Sender: FDA-Public Use
  Company Number: US-ROXANE LABORATORIES, INC.-2010-RO-00562RO

PATIENT
  Sex: Female

DRUGS (3)
  1. ZOLPIDEM [Suspect]
     Indication: INSOMNIA
     Dosage: 10 MG
  2. QUETIAPINE [Suspect]
     Indication: INSOMNIA
     Dosage: 600 MG
  3. ALCOHOL [Suspect]

REACTIONS (9)
  - ABNORMAL SLEEP-RELATED EVENT [None]
  - BALANCE DISORDER [None]
  - BLOOD ALCOHOL INCREASED [None]
  - DISORIENTATION [None]
  - DYSARTHRIA [None]
  - MEMORY IMPAIRMENT [None]
  - POISONING [None]
  - SOMNAMBULISM [None]
  - SOMNOLENCE [None]
